FAERS Safety Report 15977873 (Version 1)
Quarter: 2019Q1

REPORT INFORMATION
  Report Type: Spontaneous
  Country: US (occurrence: US)
  Receive Date: 20190218
  Receipt Date: 20190218
  Transmission Date: 20190418
  Serious: No
  Sender: FDA-Public Use
  Company Number: US-CELGENEUS-USA-20190204336

PATIENT
  Sex: Male

DRUGS (2)
  1. IDHIFA [Suspect]
     Active Substance: ENASIDENIB MESYLATE
     Indication: LEUKAEMIA
     Dosage: 100 MILLIGRAM
     Route: 048
     Dates: start: 20181016
  2. IDHIFA [Suspect]
     Active Substance: ENASIDENIB MESYLATE
     Indication: OFF LABEL USE

REACTIONS (1)
  - Drug ineffective [Unknown]
